FAERS Safety Report 22615199 (Version 1)
Quarter: 2023Q2

REPORT INFORMATION
  Report Type: Spontaneous
  Country: JP (occurrence: JP)
  Receive Date: 20230619
  Receipt Date: 20230619
  Transmission Date: 20230722
  Serious: Yes (Other)
  Sender: FDA-Public Use
  Company Number: JP-CHEPLA-2023007253

PATIENT
  Age: 6 Month
  Sex: Female

DRUGS (5)
  1. VALGANCICLOVIR [Suspect]
     Active Substance: VALGANCICLOVIR
     Indication: Cytomegalovirus infection reactivation
  2. GANCICLOVIR [Suspect]
     Active Substance: GANCICLOVIR
  3. DEXAMETHASONE [Suspect]
     Active Substance: DEXAMETHASONE
  4. PREDNISOLONE [Suspect]
     Active Substance: PREDNISOLONE
  5. FOSCARNET [Suspect]
     Active Substance: FOSCARNET

REACTIONS (8)
  - Respiratory distress [Unknown]
  - Coombs positive haemolytic anaemia [Unknown]
  - Haemophagocytic lymphohistiocytosis [Unknown]
  - Lymphopenia [Unknown]
  - Staphylococcal infection [Unknown]
  - Emphysema [Unknown]
  - Product use issue [Unknown]
  - Product use in unapproved indication [Unknown]
